FAERS Safety Report 11198419 (Version 2)
Quarter: 2016Q1

REPORT INFORMATION
  Report Type: Spontaneous
  Country: DK (occurrence: DK)
  Receive Date: 20150618
  Receipt Date: 20160209
  Transmission Date: 20160525
  Serious: Yes (Death)
  Sender: FDA-Public Use
  Company Number: DK-ACCORD-031464

PATIENT
  Age: 24 Year
  Sex: Female
  Weight: 140 kg

DRUGS (7)
  1. PREGABALIN KRKA [Suspect]
     Active Substance: PREGABALIN
     Indication: ANXIETY
     Dosage: DOSE : 225 + 150 + 225 MG DAILY, STRENGTH : 225 + 150 + 225 MG
     Route: 048
  2. QUETIAPINE TEVA [Suspect]
     Active Substance: QUETIAPINE
     Indication: SCHIZOPHRENIA
     Dosage: A MAXIMUM OF 100 MG 3 TIMES DAILY
     Route: 048
  3. LYRICA [Suspect]
     Active Substance: PREGABALIN
     Indication: ANXIETY
     Dosage: DOSE: 225 + 150 + 225 MG DAILY, STRENGTH 225 + 150 + 225 MG
     Route: 048
  4. STADAQUEL [Suspect]
     Active Substance: QUETIAPINE FUMARATE
     Indication: SCHIZOPHRENIA
     Dosage: DOSE 100 MG 3 TIMES A DAY AT MOST. STRENGTH : 100 MG
     Route: 048
  5. QUETIAPINE ACCORD [Suspect]
     Active Substance: QUETIAPINE
     Indication: SCHIZOPHRENIA
     Dosage: 100 MG NOT MORE THAN 3 TIMES A DAY
     Route: 048
  6. CYMBALTA [Concomitant]
     Active Substance: DULOXETINE HYDROCHLORIDE
     Indication: DEPRESSION
     Route: 048
     Dates: start: 20150120
  7. OXAZEPAM. [Concomitant]
     Active Substance: OXAZEPAM
     Route: 048
     Dates: end: 20150216

REACTIONS (2)
  - Cardiac arrest [Fatal]
  - Arrhythmia [Fatal]

NARRATIVE: CASE EVENT DATE: 20150320
